FAERS Safety Report 14301627 (Version 1)
Quarter: 2017Q4

REPORT INFORMATION
  Report Type: Spontaneous
  Country: US (occurrence: US)
  Receive Date: 20171219
  Receipt Date: 20171219
  Transmission Date: 20180321
  Serious: No
  Sender: FDA-Public Use
  Company Number: US-GLAXOSMITHKLINE-US2017191723

PATIENT
  Age: 76 Year
  Sex: Female

DRUGS (1)
  1. ABREVA [Suspect]
     Active Substance: DOCOSANOL
     Indication: ORAL HERPES
     Dosage: 3 TO 4 TIMES DAILY
     Dates: start: 20171206

REACTIONS (3)
  - Inappropriate schedule of drug administration [Unknown]
  - Oral herpes [Unknown]
  - Condition aggravated [Unknown]
